FAERS Safety Report 23031899 (Version 2)
Quarter: 2023Q4

REPORT INFORMATION
  Report Type: Spontaneous
  Country: US (occurrence: US)
  Receive Date: 20231005
  Receipt Date: 20231220
  Transmission Date: 20240110
  Serious: Yes (Other)
  Sender: FDA-Public Use
  Company Number: US-BRISTOL-MYERS SQUIBB COMPANY-2023-141425

PATIENT
  Age: 96 Year
  Sex: Female

DRUGS (1)
  1. CAMZYOS [Suspect]
     Active Substance: MAVACAMTEN
     Indication: Hypertrophic cardiomyopathy
     Route: 048

REACTIONS (4)
  - Back pain [Unknown]
  - Vertigo [Recovering/Resolving]
  - Tremor [Recovering/Resolving]
  - Dry age-related macular degeneration [Unknown]

NARRATIVE: CASE EVENT DATE: 20231205
